FAERS Safety Report 11031524 (Version 3)
Quarter: 2020Q2

REPORT INFORMATION
  Report Type: Report from Study
  Country: FR (occurrence: FR)
  Receive Date: 20150415
  Receipt Date: 20200408
  Transmission Date: 20200713
  Serious: Yes (Life-Threatening)
  Sender: FDA-Public Use
  Company Number: FR-009507513-1504FRA013211

PATIENT

DRUGS (1)
  1. TEMODAL [Suspect]
     Active Substance: TEMOZOLOMIDE
     Indication: MALIGNANT NEOPLASM OF RETINA
     Dosage: 150 MG/M2, 5 DAYS A MONTH, EVERY MONTH
     Route: 048

REACTIONS (3)
  - Anaemia [Recovered/Resolved]
  - Neutrophil count abnormal [Recovered/Resolved]
  - Off label use [Unknown]
